FAERS Safety Report 21280404 (Version 2)
Quarter: 2022Q4

REPORT INFORMATION
  Report Type: Spontaneous
  Country: GB (occurrence: None)
  Receive Date: 20220901
  Receipt Date: 20221223
  Transmission Date: 20230113
  Serious: Yes (Death, Life-Threatening)
  Sender: FDA-Public Use
  Company Number: 2022A299899

PATIENT
  Age: 72 Year
  Sex: Female

DRUGS (6)
  1. DURVALUMAB [Suspect]
     Active Substance: DURVALUMAB
     Indication: Adverse drug reaction
     Dosage: 1500MG ; ;120.0MG UNKNOWN
     Route: 042
     Dates: start: 20210913
  2. DURVALUMAB [Suspect]
     Active Substance: DURVALUMAB
     Indication: Non-small cell lung cancer
     Dosage: 1500MG ; ;120.0MG UNKNOWN
     Route: 042
     Dates: start: 20210913
  3. PACLITAXEL [Suspect]
     Active Substance: PACLITAXEL
     Indication: Adverse drug reaction
     Dosage: 90MG; ;120.0MG UNKNOWN
     Route: 065
     Dates: start: 20210629, end: 20210803
  4. PACLITAXEL [Suspect]
     Active Substance: PACLITAXEL
     Indication: Non-small cell lung cancer
     Dosage: 90MG; ;120.0MG UNKNOWN
     Route: 065
     Dates: start: 20210629, end: 20210803
  5. CARBOPLATIN [Concomitant]
     Active Substance: CARBOPLATIN
     Indication: Adverse drug reaction
     Route: 065
     Dates: start: 20210629, end: 20210803
  6. CARBOPLATIN [Concomitant]
     Active Substance: CARBOPLATIN
     Indication: Non-small cell lung cancer
     Route: 065
     Dates: start: 20210629, end: 20210803

REACTIONS (1)
  - Death [Fatal]

NARRATIVE: CASE EVENT DATE: 20211027
